FAERS Safety Report 11969311 (Version 1)
Quarter: 2016Q1

REPORT INFORMATION
  Report Type: Spontaneous
  Country: US (occurrence: None)
  Receive Date: 20160119
  Receipt Date: 20160119
  Transmission Date: 20160526
  Serious: Yes (Other)
  Sender: FDA-Public Use
  Company Number: 2015-US-007007

PATIENT
  Age: 12 Year
  Sex: Male

DRUGS (6)
  1. VINCRISTINE [Concomitant]
     Active Substance: VINCRISTINE
  2. DEXAMETHASONE. [Concomitant]
     Active Substance: DEXAMETHASONE
  3. DOXORUBICIN [Concomitant]
     Active Substance: DOXORUBICIN
  4. BENADRYL (CAMPHOR, DIPHENHYDRAMINE HYDROCHLORIDE, ZINC OXIDE) [Concomitant]
  5. ERWINAZE [Suspect]
     Active Substance: ASPARAGINASE ERWINIA CHRYSANTHEMI
     Indication: ACUTE LYMPHOCYTIC LEUKAEMIA
     Dosage: 35000 IU, 6 DOSES, INTRAVENOUS
     Route: 042
     Dates: start: 20150211, end: 2015
  6. ZOFRAN (ONDANSETRON HYDROCHLORIDE) [Concomitant]

REACTIONS (7)
  - Hyperammonaemia [None]
  - Rash [None]
  - Pruritus [None]
  - Flushing [None]
  - Heart rate increased [None]
  - Nausea [None]
  - Vomiting [None]

NARRATIVE: CASE EVENT DATE: 20150511
